FAERS Safety Report 18224156 (Version 1)
Quarter: 2020Q3

REPORT INFORMATION
  Report Type: Spontaneous
  Country: CN (occurrence: CN)
  Receive Date: 20200902
  Receipt Date: 20200902
  Transmission Date: 20201103
  Serious: Yes (Other)
  Sender: FDA-Public Use
  Company Number: CN-BAUSCH-BL-2020-024958

PATIENT
  Age: 33 Year
  Sex: Female

DRUGS (16)
  1. DEXAMETHASONE. [Suspect]
     Active Substance: DEXAMETHASONE
     Route: 037
     Dates: start: 2017, end: 2017
  2. IFOSFAMIDE. [Suspect]
     Active Substance: IFOSFAMIDE
     Indication: PRIMARY MEDIASTINAL LARGE B-CELL LYMPHOMA
     Dosage: DICE THERAPY, ONE CYCLE
     Route: 065
     Dates: start: 201704, end: 201704
  3. CISPLATIN. [Suspect]
     Active Substance: CISPLATIN
     Indication: PRIMARY MEDIASTINAL LARGE B-CELL LYMPHOMA
     Dosage: DICE REGIMEN, ONE CYCLE
     Route: 065
     Dates: start: 201704, end: 201704
  4. ETOPOSIDE. [Suspect]
     Active Substance: ETOPOSIDE
     Indication: PRIMARY MEDIASTINAL LARGE B-CELL LYMPHOMA
     Dosage: FOUR CYCLES OF DOSE?ADJUSTED, DA?EPOCH?R REGIMEN
     Route: 065
     Dates: start: 201602, end: 2016
  5. ETOPOSIDE. [Suspect]
     Active Substance: ETOPOSIDE
     Dosage: 2 CYCLES, GDPE?R REGIMEN
     Route: 065
     Dates: start: 201606
  6. BENDAMUSTINE [Suspect]
     Active Substance: BENDAMUSTINE
     Indication: PRIMARY MEDIASTINAL LARGE B-CELL LYMPHOMA
     Dosage: IBC THERAPY, 1 CYCLE
     Route: 065
     Dates: start: 201705, end: 201705
  7. CYTARABINE. [Suspect]
     Active Substance: CYTARABINE
     Indication: PRIMARY MEDIASTINAL LARGE B-CELL LYMPHOMA
     Dosage: IBC THERAPY, 1 CYCLE
     Route: 065
     Dates: start: 201705, end: 201705
  8. DEXAMETHASONE. [Suspect]
     Active Substance: DEXAMETHASONE
     Indication: PRIMARY MEDIASTINAL LARGE B-CELL LYMPHOMA
     Dosage: 1 CYCLE, DICE REGIMEN
     Route: 065
     Dates: start: 201704, end: 201704
  9. GEMCITABINE. [Concomitant]
     Active Substance: GEMCITABINE
     Dates: start: 201706
  10. ETOPOSIDE. [Suspect]
     Active Substance: ETOPOSIDE
     Dosage: 1 CYCLE, DICE REGIMEN
     Route: 065
     Dates: start: 201704, end: 201704
  11. IBRUTINIB [Suspect]
     Active Substance: IBRUTINIB
     Indication: PRIMARY MEDIASTINAL LARGE B-CELL LYMPHOMA
     Dosage: IBC THERAPY, 1 CYCLE
     Route: 065
     Dates: start: 201705, end: 201705
  12. DEXAMETHASONE. [Suspect]
     Active Substance: DEXAMETHASONE
     Route: 037
     Dates: start: 201706
  13. CISPLATIN. [Suspect]
     Active Substance: CISPLATIN
     Dosage: GDPE?R REGIMEN, 2 CYCLES
     Route: 065
     Dates: start: 201606
  14. CISPLATIN. [Suspect]
     Active Substance: CISPLATIN
     Dosage: GDP CHEMOTHERAPY
     Route: 065
     Dates: start: 201706
  15. CYTARABINE. [Suspect]
     Active Substance: CYTARABINE
     Route: 037
     Dates: start: 2017
  16. GEMCITABINE. [Concomitant]
     Active Substance: GEMCITABINE
     Indication: PRIMARY MEDIASTINAL LARGE B-CELL LYMPHOMA
     Dosage: TWO CYCLES, GDPE?R THERAPY
     Dates: start: 201606, end: 2016

REACTIONS (2)
  - Myelosuppression [Recovered/Resolved]
  - Therapy partial responder [Unknown]

NARRATIVE: CASE EVENT DATE: 201705
